FAERS Safety Report 7051242-0 (Version None)
Quarter: 2010Q4

REPORT INFORMATION
  Report Type: 
  Country: None (occurrence: None)
  Receive Date: 20101018
  Receipt Date: 20101018
  Transmission Date: 20110411
  Serious: Yes (Life-Threatening, Hospitalization)
  Sender: FDA-Public Use
  Company Number: None

PATIENT
  Age: 56 Year
  Sex: Male
  Weight: 109.5 kg

DRUGS (10)
  1. RITUXAN [Suspect]
     Indication: WALDENSTROM'S MACROGLOBULINAEMIA
     Dosage: 375 MG/M^2 WEEKLY X4 THEN Q3WKS IV (042) (JULY AND AUGUST 2010)
     Route: 042
  2. CYTOXAN [Suspect]
     Indication: WALDENSTROM'S MACROGLOBULINAEMIA
     Dosage: 750MG/M^2 (REDUCE TO 560MG/M2) EVERY 3 WEEKS IV (042)
     Route: 042
     Dates: start: 20100729
  3. CYTOXAN [Suspect]
     Indication: WALDENSTROM'S MACROGLOBULINAEMIA
     Dosage: 750MG/M^2 (REDUCE TO 560MG/M2) EVERY 3 WEEKS IV (042)
     Route: 042
     Dates: start: 20100826
  4. PEPCID [Concomitant]
  5. CARVEDILOL [Concomitant]
  6. AMBIEN [Concomitant]
  7. DAPTOMYCIN [Concomitant]
  8. LORAZEPAM [Concomitant]
  9. PREDNISONE [Concomitant]
  10. DAPTOMYCIN [Concomitant]

REACTIONS (5)
  - ATELECTASIS [None]
  - PLEURAL EFFUSION [None]
  - PNEUMONITIS [None]
  - PULMONARY EMBOLISM [None]
  - RESPIRATORY FAILURE [None]
